FAERS Safety Report 4554877-X (Version None)
Quarter: 2004Q4

REPORT INFORMATION
  Report Type: 
  Country: None (occurrence: None)
  Receive Date: 20041222
  Receipt Date: 20040908
  Transmission Date: 20050328
  Serious: Yes (Life-Threatening)
  Sender: FDA-Public Use
  Company Number: 208912

PATIENT
  Age: 56 Year
  Sex: Male
  Weight: 87.1 kg

DRUGS (5)
  1. AVASTIN [Suspect]
     Indication: COLORECTAL CANCER METASTATIC
     Dosage: 366 MG, QOW, INTRAVENOUS
     Route: 042
     Dates: start: 20040617, end: 20040907
  2. OXALIPLATIN (OXALIPLATIN) [Concomitant]
  3. FLUOROURACIL [Concomitant]
  4. LEUCOVORIN CALCIUM [Concomitant]
  5. ARANESP [Concomitant]

REACTIONS (1)
  - DEEP VEIN THROMBOSIS [None]
